FAERS Safety Report 25702050 (Version 2)
Quarter: 2025Q4

REPORT INFORMATION
  Report Type: Spontaneous
  Country: US (occurrence: US)
  Receive Date: 20250819
  Receipt Date: 20251120
  Transmission Date: 20260118
  Serious: No
  Sender: PFIZER
  Company Number: US-PFIZER INC-202500164583

PATIENT
  Age: 59 Year
  Sex: Female

DRUGS (1)
  1. XELJANZ XR [Suspect]
     Active Substance: TOFACITINIB CITRATE
     Indication: Rheumatoid arthritis
     Dosage: 11 MG, DAILY, TAKE 1 TABLET DAILY

REACTIONS (3)
  - Weight increased [Not Recovered/Not Resolved]
  - Fatigue [Recovered/Resolved]
  - Musculoskeletal stiffness [Unknown]
